FAERS Safety Report 21049995 (Version 1)
Quarter: 2022Q3

REPORT INFORMATION
  Report Type: Spontaneous
  Country: US (occurrence: US)
  Receive Date: 20220706
  Receipt Date: 20220706
  Transmission Date: 20221027
  Serious: Yes (Death, Other)
  Sender: FDA-Public Use
  Company Number: US-009507513-2207USA001189

PATIENT
  Age: 11 Year
  Sex: Female

DRUGS (1)
  1. ZOLINZA [Suspect]
     Active Substance: VORINOSTAT
     Indication: Acute myeloid leukaemia

REACTIONS (2)
  - Renal failure [Fatal]
  - Product use in unapproved indication [Unknown]
